FAERS Safety Report 4886092-4 (Version None)
Quarter: 2006Q1

REPORT INFORMATION
  Report Type: 
  Country: None (occurrence: None)
  Receive Date: 20060118
  Receipt Date: 20060118
  Transmission Date: 20060701
  Serious: Yes (Hospitalization, Other)
  Sender: FDA-Public Use
  Company Number: None

PATIENT
  Sex: Male
  Weight: 106.36 kg

DRUGS (4)
  1. TEMOZOLOMIDE [Suspect]
     Indication: ANAPLASTIC ASTROCYTOMA
     Dosage: SEE IMAGE
     Dates: start: 20051227, end: 20051231
  2. AMOXICILLIN [Concomitant]
  3. DEXAMETHASONE [Concomitant]
  4. KEPPRA [Concomitant]

REACTIONS (12)
  - ADVERSE DRUG REACTION [None]
  - CSF LYMPHOCYTE COUNT INCREASED [None]
  - CSF WHITE BLOOD CELL COUNT INCREASED [None]
  - DEHYDRATION [None]
  - ERYTHEMA [None]
  - HEADACHE [None]
  - MENINGITIS ASEPTIC [None]
  - ORAL INTAKE REDUCED [None]
  - PHOTOPHOBIA [None]
  - PYREXIA [None]
  - RASH [None]
  - RASH PRURITIC [None]
